FAERS Safety Report 25112926 (Version 2)
Quarter: 2025Q1

REPORT INFORMATION
  Report Type: Spontaneous
  Country: US (occurrence: US)
  Receive Date: 20250324
  Receipt Date: 20250325
  Transmission Date: 20250409
  Serious: No
  Sender: UCB
  Company Number: US-UCBSA-2024067815

PATIENT
  Age: 30 Year
  Sex: Male

DRUGS (1)
  1. BIMZELX [Suspect]
     Active Substance: BIMEKIZUMAB-BKZX
     Indication: Hidradenitis
     Dosage: 320 MILLIGRAM, EV 4 WEEKS
     Route: 058
     Dates: start: 202410

REACTIONS (6)
  - Hidradenitis [Unknown]
  - Depressed mood [Unknown]
  - Mood altered [Unknown]
  - Crying [Unknown]
  - Emotional disorder [Unknown]
  - Stress [Unknown]

NARRATIVE: CASE EVENT DATE: 20241101
